FAERS Safety Report 19685174 (Version 1)
Quarter: 2021Q3

REPORT INFORMATION
  Report Type: Spontaneous
  Country: GB (occurrence: GB)
  Receive Date: 20210811
  Receipt Date: 20210811
  Transmission Date: 20211014
  Serious: Yes (Other)
  Sender: FDA-Public Use
  Company Number: GB-TORRENT-00026225

PATIENT
  Age: 69 Year
  Sex: Female

DRUGS (16)
  1. PERINDOPRIL ERBUMINE. [Concomitant]
     Active Substance: PERINDOPRIL ERBUMINE
     Indication: ILL-DEFINED DISORDER
     Dosage: UNKNOWN
  2. LAMOTRIGINE. [Concomitant]
     Active Substance: LAMOTRIGINE
     Indication: ILL-DEFINED DISORDER
     Dosage: UNKNOWN
  3. AMLODIPINE MALEATE [Concomitant]
     Active Substance: AMLODIPINE MALEATE
     Indication: ILL-DEFINED DISORDER
     Dosage: UNKNOWN
  4. ATORVASTATIN CALCIUM. [Concomitant]
     Active Substance: ATORVASTATIN CALCIUM
     Indication: ILL-DEFINED DISORDER
     Dosage: UNKNOWN
  5. LEVOTHYROXINE SODIUM. [Concomitant]
     Active Substance: LEVOTHYROXINE SODIUM
     Indication: ILL-DEFINED DISORDER
     Dosage: UNKNOWN
  6. CLOPIDOGREL SULPHATE [Concomitant]
     Indication: ILL-DEFINED DISORDER
     Dosage: UNKNOWN
  7. METFORMIN [Concomitant]
     Active Substance: METFORMIN HYDROCHLORIDE
     Indication: ILL-DEFINED DISORDER
     Dosage: UNKNOWN
  8. TRAMADOL. [Concomitant]
     Active Substance: TRAMADOL
     Indication: ILL-DEFINED DISORDER
     Dosage: UNKNOWN
  9. DULOXETINE. [Suspect]
     Active Substance: DULOXETINE
     Indication: MIGRAINE
     Dosage: 60 MG OD
     Route: 048
     Dates: start: 20210720, end: 20210726
  10. DOCUSATE [Concomitant]
     Active Substance: DOCUSATE
     Indication: ILL-DEFINED DISORDER
     Dosage: UNKNOWN
  11. MACROGOL [Concomitant]
     Active Substance: POLYETHYLENE GLYCOLS
     Indication: ILL-DEFINED DISORDER
     Dosage: UNKNOWN
  12. OMEPRAZOLE SODIUM [Concomitant]
     Active Substance: OMEPRAZOLE SODIUM
     Indication: ILL-DEFINED DISORDER
     Dosage: UNKNOWN
  13. PROPRANOLOL HYDROCHLORIDE. [Concomitant]
     Active Substance: PROPRANOLOL HYDROCHLORIDE
     Indication: ILL-DEFINED DISORDER
     Dosage: UNKNOWN
  14. BISACODYL. [Concomitant]
     Active Substance: BISACODYL
     Indication: ILL-DEFINED DISORDER
     Dosage: UNKNOWN
  15. HUMULIN M3 [Concomitant]
     Active Substance: INSULIN HUMAN
     Indication: ILL-DEFINED DISORDER
     Dosage: UNKNOWN
  16. METOCLOPRAMIDE HYDROCHLORIDE. [Concomitant]
     Active Substance: METOCLOPRAMIDE HYDROCHLORIDE
     Indication: ILL-DEFINED DISORDER
     Dosage: UNKNOWN

REACTIONS (2)
  - Abnormal behaviour [Recovered/Resolved]
  - Oral mucosal blistering [Recovered/Resolved]
